FAERS Safety Report 6035499-0 (Version None)
Quarter: 2009Q1

REPORT INFORMATION
  Report Type: 
  Country: None (occurrence: None)
  Receive Date: 20090113
  Receipt Date: 20090108
  Transmission Date: 20090719
  Serious: Yes (Death)
  Sender: FDA-Public Use
  Company Number: JP-AVENTIS-200813517JP

PATIENT
  Age: 73 Year
  Sex: Male
  Weight: 39 kg

DRUGS (5)
  1. LASIX [Suspect]
     Indication: RENAL FAILURE
     Route: 048
     Dates: start: 20080904, end: 20081028
  2. LASIX [Suspect]
     Route: 048
     Dates: start: 20081029, end: 20081105
  3. MUCOSTA [Suspect]
     Indication: PROPHYLAXIS
     Route: 048
     Dates: start: 20081030, end: 20081105
  4. TAKEPRON [Suspect]
     Route: 048
     Dates: start: 20081030, end: 20081105
  5. TWINPAL [Concomitant]
     Indication: FLUID REPLACEMENT
     Route: 041
     Dates: start: 20080828, end: 20081111

REACTIONS (2)
  - PULMONARY HAEMORRHAGE [None]
  - THROMBOCYTOPENIA [None]
